FAERS Safety Report 8696615 (Version 2)
Quarter: 2012Q4

REPORT INFORMATION
  Report Type: 
  Country: IT (occurrence: IT)
  Receive Date: 20120801
  Receipt Date: 20120830
  Transmission Date: 20130627
  Serious: Yes (Hospitalization)
  Sender: FDA-Public Use
  Company Number: IT-TEVA-349947ISR

PATIENT
  Age: 91 Year
  Sex: Female

DRUGS (10)
  1. LEVOFLOXACIN [Suspect]
     Indication: BACTERIAL INFECTION
     Dosage: 500 Milligram Daily;
     Route: 048
  2. TRAMADOL [Interacting]
     Route: 065
  3. GLYBURIDE AND METFORMIN [Interacting]
     Indication: TYPE 2 DIABETES MELLITUS
     Dosage: 2.5mg glibenclamide/400mg metformin 3 times daily
     Route: 048
  4. BUPRENORPHINE [Interacting]
     Indication: PAIN
     Dosage: 35 microg/hour
     Route: 062
  5. NADROPARIN CALCIUM [Interacting]
     Dosage: 3800 IU (International Unit) Daily;
     Route: 058
  6. ASPIRIN [Concomitant]
     Route: 048
  7. INSULIN [Concomitant]
     Route: 065
  8. LANSOPRAZOLE [Concomitant]
     Dosage: 30mg
     Route: 065
  9. ENALAPRIL [Concomitant]
     Indication: HYPERTENSION
     Route: 065
  10. ENALAPRIL, HYDROCHLOROTHIAZIDE [Concomitant]
     Indication: HYPERTENSION
     Dosage: enalapril 20mg/hydrochlorothiazide 12.5mg once/day
     Route: 048

REACTIONS (2)
  - Hypoglycaemic coma [Recovered/Resolved]
  - Drug interaction [Recovered/Resolved]
